FAERS Safety Report 12661422 (Version 1)
Quarter: 2016Q3

REPORT INFORMATION
  Report Type: Report from Study
  Country: BR (occurrence: BR)
  Receive Date: 20160817
  Receipt Date: 20160817
  Transmission Date: 20161109
  Serious: Yes (Other)
  Sender: FDA-Public Use
  Company Number: PHHY2016BR112532

PATIENT
  Sex: Male
  Weight: 82 kg

DRUGS (3)
  1. EXELON PATCH [Suspect]
     Active Substance: RIVASTIGMINE
     Indication: SENILE DEMENTIA
     Dosage: (PATCH 10 CM2)
     Route: 062
     Dates: start: 20130822
  2. EXELON PATCH [Suspect]
     Active Substance: RIVASTIGMINE
     Indication: AMNESIA
     Dosage: (PATCH 15 CM2)
     Route: 062
     Dates: end: 201310
  3. EXELON PATCH [Suspect]
     Active Substance: RIVASTIGMINE
     Dosage: (PATCH 10 CM2)
     Route: 062
     Dates: start: 20160602

REACTIONS (2)
  - Muscle spasms [Not Recovered/Not Resolved]
  - Muscle contractions involuntary [Unknown]
